FAERS Safety Report 17157656 (Version 1)
Quarter: 2019Q4

REPORT INFORMATION
  Report Type: Spontaneous
  Country: US (occurrence: US)
  Receive Date: 20191213
  Receipt Date: 20191213
  Transmission Date: 20200122
  Serious: Yes (Hospitalization)
  Sender: FDA-Public Use
  Company Number: None

PATIENT
  Age: 42 Year
  Sex: Female
  Weight: 79.9 kg

DRUGS (1)
  1. SODIUM FERRIC GLUCONATE COMPLEX. [Suspect]
     Active Substance: SODIUM FERRIC GLUCONATE COMPLEX
     Indication: IRON DEFICIENCY
     Route: 042

REACTIONS (11)
  - Pharyngeal swelling [None]
  - Pruritus [None]
  - Urticaria [None]
  - Flank pain [None]
  - Peripheral swelling [None]
  - Vomiting [None]
  - Muscle spasms [None]
  - Lip swelling [None]
  - Nausea [None]
  - Back pain [None]
  - Dyspnoea [None]

NARRATIVE: CASE EVENT DATE: 20191203
